FAERS Safety Report 8934485 (Version 1)
Quarter: 2012Q4

REPORT INFORMATION
  Report Type: 
  Country: US (occurrence: US)
  Receive Date: 20121129
  Receipt Date: 20121129
  Transmission Date: 20130627
  Serious: No
  Sender: FDA-Public Use
  Company Number: US-GLAXOSMITHKLINE-A0950448A

PATIENT
  Sex: Female

DRUGS (3)
  1. FLOVENT [Suspect]
     Indication: PULMONARY CONGESTION
     Route: 055
  2. MULTIPLE MEDICATIONS [Concomitant]
  3. MUSCLE RELAXER [Concomitant]

REACTIONS (9)
  - Headache [Unknown]
  - Musculoskeletal pain [Unknown]
  - Insomnia [Unknown]
  - Neuropathy peripheral [Unknown]
  - Neuralgia [Unknown]
  - Muscle spasms [Unknown]
  - Condition aggravated [Unknown]
  - Dyspnoea [Unknown]
  - Activities of daily living impaired [Unknown]
